FAERS Safety Report 23103195 (Version 2)
Quarter: 2023Q4

REPORT INFORMATION
  Report Type: Spontaneous
  Country: BR (occurrence: BR)
  Receive Date: 20231025
  Receipt Date: 20231111
  Transmission Date: 20240110
  Serious: Yes (Hospitalization, Other)
  Sender: FDA-Public Use
  Company Number: BR-Accord-386645

PATIENT
  Age: 76 Year
  Weight: 93.5 kg

DRUGS (3)
  1. CISPLATIN [Suspect]
     Active Substance: CISPLATIN
     Indication: Product used for unknown indication
     Dosage: EVERY 21 DAYS
  2. GEMCITABINE [Concomitant]
     Active Substance: GEMCITABINE
  3. DURVALUMAB [Concomitant]
     Active Substance: DURVALUMAB

REACTIONS (4)
  - Arthralgia [Recovered/Resolved]
  - Thrombocytopenia [Recovered/Resolved]
  - Neutropenia [Recovered/Resolved]
  - Anaemia [Recovered/Resolved]
